FAERS Safety Report 8081492-6 (Version None)
Quarter: 2012Q1

REPORT INFORMATION
  Report Type: 
  Country: None (occurrence: None)
  Receive Date: 20120130
  Receipt Date: 20120120
  Transmission Date: 20120608
  Serious: Yes (Other)
  Sender: FDA-Public Use
  Company Number: PHHY2012BR005596

PATIENT
  Age: 88 Year
  Sex: Female

DRUGS (3)
  1. MEMANTINE HYDROCHLORIDE [Suspect]
     Indication: DEMENTIA ALZHEIMER'S TYPE
     Dosage: 1 DF, BID
  2. EXELON [Suspect]
     Indication: DEMENTIA ALZHEIMER'S TYPE
     Dosage: 9.5 MG (18MG/10CM2) PER DAY
     Route: 062
  3. CLONAZEPAM [Concomitant]
     Dosage: 1 DF, PRN (AS NECESSARY)
     Route: 060

REACTIONS (2)
  - AGITATION [None]
  - SUICIDAL IDEATION [None]
